FAERS Safety Report 12257539 (Version 1)
Quarter: 2016Q2

REPORT INFORMATION
  Report Type: Spontaneous
  Country: FR (occurrence: FR)
  Receive Date: 20160412
  Receipt Date: 20160412
  Transmission Date: 20160815
  Serious: Yes (Life-Threatening)
  Sender: FDA-Public Use
  Company Number: FR-TEVA-650723ISR

PATIENT
  Age: 66 Year
  Sex: Male

DRUGS (18)
  1. CISPLATINE TEVA 1 MG/1 ML [Suspect]
     Active Substance: CISPLATIN
     Indication: HYPOPHARYNGEAL CANCER
     Dosage: 6 COURSES. 32 MG OF CISPLATIN PER COURSE
     Route: 042
     Dates: start: 20061120, end: 20061226
  2. METFORMIN [Concomitant]
     Active Substance: METFORMIN HYDROCHLORIDE
     Dosage: USUAL TREATMENT
  3. LAMALINE [Concomitant]
     Active Substance: ACETAMINOPHEN\CAFFEINE\OPIUM
     Indication: PAIN
     Dosage: 6 DOSAGE FORMS DAILY; IN CASE OF PAIN
  4. TAXOTERE [Suspect]
     Active Substance: DOCETAXEL
     Indication: HYPOPHARYNGEAL CANCER
     Dosage: 3 COURSES. D1 OF EACH COURSE
     Route: 042
     Dates: start: 20090309, end: 20090426
  5. FLUOROURACILE MYLAN 50 MG/ML [Suspect]
     Active Substance: FLUOROURACIL
     Indication: HYPOPHARYNGEAL CANCER
     Dosage: 6 COURSES. 1821 MG OF FLUOROURACIL PER COURSE
     Route: 042
     Dates: start: 20061120, end: 20061226
  6. TARDYFERON [Concomitant]
     Active Substance: FERROUS SULFATE\FOLIC ACID
     Dosage: USUAL TREATMENT
  7. ZYLORIC 200 MG [Concomitant]
     Dosage: USUAL TREATMENT
  8. TARKA [Concomitant]
     Active Substance: TRANDOLAPRIL\VERAPAMIL HYDROCHLORIDE
     Dosage: TRANDOLAPRIL 2 MG + VERAPAMIL HYDROCHLORIDE 180 MG. USUAL TREATMENT
  9. RHINOCORT [Concomitant]
     Active Substance: BUDESONIDE
     Dosage: USUAL TREATMENT
  10. IMOVANE [Concomitant]
     Active Substance: ZOPICLONE
     Dosage: USUAL TREATMENT
  11. LEVOTHYROX 75 MCG [Concomitant]
     Dosage: USUAL TREATMENT
  12. PANTOPRAZOLE SODIUM. [Concomitant]
     Active Substance: PANTOPRAZOLE SODIUM
     Dosage: USUAL TREATMENT
  13. AERIUS 5 MG [Concomitant]
     Dosage: USUAL TREATMENT
  14. DEXAMETHASONE MERCK [Suspect]
     Active Substance: DEXAMETHASONE
     Indication: HYPOPHARYNGEAL CANCER
     Dosage: 3 COURSES. D1 TO D3 OF EACH COURSE
     Route: 042
     Dates: start: 20090309, end: 20090426
  15. KARDEGIC 160 MG [Concomitant]
     Dosage: USUAL TREATMENT
  16. FORLAX [Concomitant]
     Active Substance: POLYETHYLENE GLYCOL 4000
     Dosage: IF NEEDED
  17. CISPLATINE TEVA 1 MG/1 ML [Suspect]
     Active Substance: CISPLATIN
     Dosage: 3 COURSES. D1 OF EACH COURSE
     Route: 042
     Dates: start: 20090309, end: 20090426
  18. FLUOROURACILE MYLAN 50 MG/ML [Suspect]
     Active Substance: FLUOROURACIL
     Dosage: 3 COURSES. D1 TO D5 OF EACH COURSE
     Route: 042
     Dates: start: 20090309, end: 20090426

REACTIONS (1)
  - B-cell lymphoma [Not Recovered/Not Resolved]

NARRATIVE: CASE EVENT DATE: 201603
